FAERS Safety Report 8886243 (Version 1)
Quarter: 2012Q4

REPORT INFORMATION
  Report Type: 
  Country: US (occurrence: US)
  Receive Date: 20121105
  Receipt Date: 20121105
  Transmission Date: 20130627
  Serious: Yes (Death)
  Sender: FDA-Public Use
  Company Number: US-SANOFI-AVENTIS-2012SA078654

PATIENT
  Age: 52 Year
  Sex: Male

DRUGS (1)
  1. RILUTEK [Suspect]
     Route: 048

REACTIONS (1)
  - Death [Fatal]
